FAERS Safety Report 7119337-0 (Version None)
Quarter: 2010Q4

REPORT INFORMATION
  Report Type: 
  Country: None (occurrence: None)
  Receive Date: 20101123
  Receipt Date: 20101115
  Transmission Date: 20110411
  Serious: Yes (Other)
  Sender: FDA-Public Use
  Company Number: ES-ABBOTT-10P-144-0685281-00

PATIENT
  Age: 50 Year
  Sex: Female

DRUGS (3)
  1. HUMIRA [Suspect]
     Indication: RHEUMATOID ARTHRITIS
     Route: 058
     Dates: start: 20100627
  2. ZAMENE [Interacting]
     Indication: RHEUMATOID ARTHRITIS
     Route: 048
     Dates: start: 20091230
  3. ZEFFIX [Concomitant]
     Indication: HEPATITIS B
     Route: 048
     Dates: start: 20091101

REACTIONS (2)
  - DRUG INTERACTION [None]
  - EUPHORIC MOOD [None]
